FAERS Safety Report 15053570 (Version 1)
Quarter: 2018Q2

REPORT INFORMATION
  Report Type: Report from Study
  Country: US (occurrence: US)
  Receive Date: 20180622
  Receipt Date: 20180622
  Transmission Date: 20180711
  Serious: No
  Sender: FDA-Public Use
  Company Number: US-AMGEN-USASL2015089562

PATIENT
  Sex: Female

DRUGS (1)
  1. NPLATE [Suspect]
     Active Substance: ROMIPLOSTIM
     Indication: IMMUNE THROMBOCYTOPENIC PURPURA
     Dosage: 1 MUG/KG, UNK
     Route: 065
     Dates: start: 2012

REACTIONS (7)
  - Neck pain [Unknown]
  - Pain [Unknown]
  - Fatigue [Unknown]
  - Musculoskeletal pain [Unknown]
  - Memory impairment [Unknown]
  - Adverse drug reaction [Unknown]
  - Influenza like illness [Unknown]
